FAERS Safety Report 21791477 (Version 3)
Quarter: 2023Q4

REPORT INFORMATION
  Report Type: Spontaneous
  Country: US (occurrence: None)
  Receive Date: 20221228
  Receipt Date: 20231003
  Transmission Date: 20240109
  Serious: Yes (Disabling)
  Sender: FDA-Public Use
  Company Number: 2022A400270

PATIENT
  Sex: Male

DRUGS (1)
  1. BEVESPI AEROSPHERE [Suspect]
     Active Substance: FORMOTEROL FUMARATE\GLYCOPYRROLATE
     Indication: Chronic obstructive pulmonary disease
     Dosage: 18 UG TWO PUFFS, TWO TIMES A DAY
     Route: 055

REACTIONS (4)
  - Macular degeneration [Unknown]
  - Device malfunction [Unknown]
  - Device malfunction [Unknown]
  - Device delivery system issue [Unknown]
